FAERS Safety Report 9931838 (Version 1)
Quarter: 2014Q1

REPORT INFORMATION
  Report Type: Spontaneous
  Country: US (occurrence: None)
  Receive Date: 20140227
  Receipt Date: 20140227
  Transmission Date: 20141002
  Serious: Yes (Disabling)
  Sender: FDA-Public Use
  Company Number: None

PATIENT
  Age: 47 Year
  Sex: Female
  Weight: 72.58 kg

DRUGS (2)
  1. LEVAQUIN [Suspect]
     Indication: PULMONARY CONGESTION
  2. LEVAQUIN [Suspect]
     Indication: URINARY TRACT INFECTION

REACTIONS (9)
  - Tremor [None]
  - Tinnitus [None]
  - Burning sensation [None]
  - Anxiety [None]
  - Muscle spasms [None]
  - Tendon disorder [None]
  - Pain [None]
  - Musculoskeletal stiffness [None]
  - Decreased activity [None]
